FAERS Safety Report 20599658 (Version 1)
Quarter: 2022Q1

REPORT INFORMATION
  Report Type: Report from Study
  Country: IE (occurrence: IE)
  Receive Date: 20220316
  Receipt Date: 20220316
  Transmission Date: 20220424
  Serious: Yes (Hospitalization)
  Sender: FDA-Public Use
  Company Number: IE-AstraZeneca-2022A096497

PATIENT
  Age: 2 Year
  Sex: Male

DRUGS (9)
  1. SYNAGIS [Suspect]
     Active Substance: PALIVIZUMAB
     Indication: Osteogenesis imperfecta
     Route: 030
     Dates: start: 20211126
  2. SYNAGIS [Suspect]
     Active Substance: PALIVIZUMAB
     Indication: Osteogenesis imperfecta
     Route: 030
     Dates: start: 20220108, end: 2022
  3. SYNAGIS [Suspect]
     Active Substance: PALIVIZUMAB
     Indication: Osteogenesis imperfecta
     Route: 030
     Dates: start: 20220205, end: 2022
  4. SYNAGIS [Suspect]
     Active Substance: PALIVIZUMAB
     Route: 030
  5. SYNAGIS [Suspect]
     Active Substance: PALIVIZUMAB
     Route: 030
  6. LACTULOSE [Concomitant]
     Active Substance: LACTULOSE
     Indication: Product used for unknown indication
     Route: 050
  7. IRON [Concomitant]
     Active Substance: IRON
     Indication: Product used for unknown indication
     Route: 050
  8. VITAMINS [Concomitant]
     Active Substance: VITAMINS
     Indication: Product used for unknown indication
     Route: 050
  9. KEFLEX [Concomitant]
     Active Substance: CEPHALEXIN
     Indication: Product used for unknown indication
     Route: 050

REACTIONS (3)
  - Sepsis [Unknown]
  - Viral infection [Unknown]
  - Scratch [Recovered/Resolved]

NARRATIVE: CASE EVENT DATE: 20220219
